FAERS Safety Report 17744971 (Version 1)
Quarter: 2020Q2

REPORT INFORMATION
  Report Type: Spontaneous
  Country: US (occurrence: US)
  Receive Date: 20200504
  Receipt Date: 20200504
  Transmission Date: 20200714
  Serious: No
  Sender: FDA-Public Use
  Company Number: None

PATIENT
  Sex: Female

DRUGS (1)
  1. STELARA [Suspect]
     Active Substance: USTEKINUMAB
     Indication: PSORIATIC ARTHROPATHY
     Dosage: ?          OTHER FREQUENCY:EVERY12WEEKS;?
     Route: 058
     Dates: start: 20191207

REACTIONS (4)
  - Arthralgia [None]
  - Musculoskeletal pain [None]
  - Back pain [None]
  - Neck pain [None]
